FAERS Safety Report 7224260-7 (Version None)
Quarter: 2011Q1

REPORT INFORMATION
  Report Type: 
  Country: None (occurrence: None)
  Receive Date: 20110113
  Receipt Date: 20110106
  Transmission Date: 20110831
  Serious: Yes (Hospitalization)
  Sender: FDA-Public Use
  Company Number: FR-ASTELLAS-2011EU000061

PATIENT
  Age: 83 Year
  Sex: Female

DRUGS (3)
  1. ASPIRIN [Concomitant]
     Dosage: UNK
     Route: 065
  2. CHOLESTEROL- AND TRIGLYCERIDE REDUCERS [Concomitant]
     Dosage: UNK
     Route: 065
  3. VESICARE [Suspect]
     Dosage: 1 DF, UID/QD
     Route: 065
     Dates: start: 20101101

REACTIONS (2)
  - HALLUCINATION [None]
  - CONFUSIONAL STATE [None]
